FAERS Safety Report 8189352-7 (Version None)
Quarter: 2012Q1

REPORT INFORMATION
  Report Type: 
  Country: None (occurrence: None)
  Receive Date: 20120307
  Receipt Date: 20120301
  Transmission Date: 20120608
  Serious: Yes (Hospitalization, Other)
  Sender: FDA-Public Use
  Company Number: US-AMGEN-USASP2012013967

PATIENT
  Age: 49 Year
  Sex: Female

DRUGS (16)
  1. FLOVENT HFA [Concomitant]
  2. VITAMIN E                          /00110501/ [Concomitant]
  3. NAPROXEN (ALEVE) [Concomitant]
  4. ALLEGRA-D 12 HOUR [Concomitant]
  5. FLAXSEED OIL [Concomitant]
  6. SINGULAIR [Concomitant]
  7. QUASENSE [Concomitant]
  8. VITAMIN C                          /00008001/ [Concomitant]
  9. POTASSIUM CHLORIDE [Concomitant]
  10. HYDROCHLOROTHIAZIDE [Concomitant]
  11. CITRACAL + D                       /01438101/ [Concomitant]
  12. PROLIA [Suspect]
     Indication: OSTEOPOROSIS
     Dosage: 60 MG, Q6MO
     Dates: start: 20111001
  13. MULTIVITAMIN                       /00097801/ [Concomitant]
  14. SUPER B COMPLEX                    /01995301/ [Concomitant]
  15. ACIDOPHILUS [Concomitant]
  16. PROAIR                             /00139502/ [Concomitant]

REACTIONS (7)
  - DYSPNOEA [None]
  - IMMUNE SYSTEM DISORDER [None]
  - RESPIRATORY TRACT INFECTION [None]
  - HEART RATE IRREGULAR [None]
  - BLOOD CALCIUM INCREASED [None]
  - BRONCHITIS [None]
  - SINUSITIS [None]
